FAERS Safety Report 7723494-2 (Version None)
Quarter: 2011Q3

REPORT INFORMATION
  Report Type: 
  Country: None (occurrence: None)
  Receive Date: 20110826
  Receipt Date: 20110815
  Transmission Date: 20111222
  Serious: Yes (Hospitalization)
  Sender: FDA-Public Use
  Company Number: TPG2011A02362

PATIENT
  Age: 52 Year
  Sex: Male

DRUGS (4)
  1. PIOGLITAZONE HYDROCHLORIDE AND METFORMIN HYDROCHLORIDE [Suspect]
     Indication: TYPE 2 DIABETES MELLITUS
     Dosage: PER ORAL
     Route: 048
     Dates: start: 20090817, end: 20110620
  2. EZETIMIBE/SIMVASTATIN [Concomitant]
  3. CONVERSUM N COMBI (INDAPAMIDE PERINDOPRIL) [Concomitant]
  4. ASPIRIN [Suspect]
     Dosage: 100 MG (100 MG, 1 IN 1 D), PER ORAL
     Route: 048
     Dates: start: 20080101

REACTIONS (3)
  - CONDITION AGGRAVATED [None]
  - BLADDER CANCER [None]
  - HAEMATURIA [None]
